FAERS Safety Report 7867076-0 (Version None)
Quarter: 2011Q4

REPORT INFORMATION
  Report Type: 
  Country: None (occurrence: None)
  Receive Date: 20111028
  Receipt Date: 20111024
  Transmission Date: 20120403
  Serious: Yes (Life-Threatening)
  Sender: FDA-Public Use
  Company Number: US-BRISTOL-MYERS SQUIBB COMPANY-16088726

PATIENT
  Age: 50 Year
  Sex: Male
  Weight: 55 kg

DRUGS (4)
  1. FLUCONAZOLE [Suspect]
     Indication: MENINGITIS CRYPTOCOCCAL
     Route: 048
     Dates: start: 20110722, end: 20110803
  2. BACTRIM [Concomitant]
     Dates: start: 20110722
  3. FLUCYTOSINE [Concomitant]
     Dates: start: 20110808, end: 20110809
  4. AMPHOTERICIN B [Suspect]
     Indication: MENINGITIS CRYPTOCOCCAL
     Dosage: REG 2, 35MG, 3 PER 1 WK 5AUG11-11AUG11
     Route: 042
     Dates: start: 20110805, end: 20110909

REACTIONS (1)
  - NEUTROPENIA [None]
